FAERS Safety Report 21546139 (Version 1)
Quarter: 2022Q4

REPORT INFORMATION
  Report Type: Spontaneous
  Country: US (occurrence: US)
  Receive Date: 20221103
  Receipt Date: 20221103
  Transmission Date: 20230113
  Serious: Yes (Other)
  Sender: FDA-Public Use
  Company Number: US-SA-SAC20221031001635

PATIENT
  Age: 47 Year
  Sex: Male

DRUGS (1)
  1. ZANTAC [Suspect]
     Active Substance: RANITIDINE HYDROCHLORIDE
     Dosage: 150 MG, FREQ: OTHER
     Dates: start: 198601, end: 201801

REACTIONS (2)
  - Renal cancer [Unknown]
  - Thyroid cancer [Unknown]

NARRATIVE: CASE EVENT DATE: 19900101
